FAERS Safety Report 11278235 (Version 1)
Quarter: 2015Q3

REPORT INFORMATION
  Report Type: Spontaneous
  Country: US (occurrence: US)
  Receive Date: 20150717
  Receipt Date: 20150717
  Transmission Date: 20151125
  Serious: No
  Sender: FDA-Public Use
  Company Number: US-JNJFOC-20150622907

PATIENT
  Sex: Female
  Weight: 56.7 kg

DRUGS (5)
  1. PROZAC [Concomitant]
     Active Substance: FLUOXETINE HYDROCHLORIDE
     Indication: BIPOLAR I DISORDER
  2. INVEGA [Suspect]
     Active Substance: PALIPERIDONE
     Indication: BIPOLAR I DISORDER
     Route: 048
     Dates: start: 20150622
  3. PROPALOL [Concomitant]
     Indication: BLOOD PRESSURE MEASUREMENT
     Route: 065
  4. INVEGA [Suspect]
     Active Substance: PALIPERIDONE
     Indication: DEPRESSION
     Route: 048
     Dates: start: 20150622
  5. PROZAC [Concomitant]
     Active Substance: FLUOXETINE HYDROCHLORIDE
     Indication: DEPRESSION

REACTIONS (2)
  - Wrong technique in product usage process [Unknown]
  - Drug effect decreased [Unknown]
